FAERS Safety Report 5584886-3 (Version None)
Quarter: 2007Q4

REPORT INFORMATION
  Report Type: 
  Country: None (occurrence: None)
  Receive Date: 20071130
  Receipt Date: 20070613
  Transmission Date: 20080405
  Serious: Yes (Disabling, Other)
  Sender: FDA-Public Use
  Company Number: WAES 0706USA02315

PATIENT
  Age: 85 Year
  Sex: Female

DRUGS (17)
  1. FOSAMAX [Suspect]
     Indication: OSTEOPOROSIS
     Dosage: 70 MG/WKY/PO
     Route: 048
     Dates: start: 20050101, end: 20070430
  2. LASIX [Concomitant]
  3. MAXITROL OPHTHALMIC [Concomitant]
  4. PROZAC [Concomitant]
  5. REMERON [Concomitant]
  6. VYTORIN [Concomitant]
  7. WELLBUTRIN SR [Concomitant]
  8. ASCORBIC ACID [Concomitant]
  9. CALCIUM (UNSPECIFIED) [Concomitant]
  10. CYANOCOBALAMIN [Concomitant]
  11. IRON (UNSPECIFIED) [Concomitant]
  12. MAGNESIUM (UNSPECIFIED) [Concomitant]
  13. NADOLOL [Concomitant]
  14. POTASSIUM CHLORIDE [Concomitant]
  15. TRAZODONE HYDROCHLORIDE [Concomitant]
  16. VITAMIN D (UNSPECIFIED) [Concomitant]
  17. ZINC (UNSPECIFIED) [Concomitant]

REACTIONS (1)
  - OSTEONECROSIS [None]
